FAERS Safety Report 25771486 (Version 1)
Quarter: 2025Q3

REPORT INFORMATION
  Report Type: Spontaneous
  Country: US (occurrence: US)
  Receive Date: 20250908
  Receipt Date: 20250908
  Transmission Date: 20251021
  Serious: No
  Sender: DOMPE FARMACEUTICI
  Company Number: US-FARMAPROD-202504-1353

PATIENT
  Sex: Female
  Weight: 83.01 kg

DRUGS (12)
  1. OXERVATE [Suspect]
     Active Substance: CENEGERMIN-BKBJ
     Indication: Neurotrophic keratopathy
     Route: 047
     Dates: start: 20240328, end: 20240521
  2. OXERVATE [Suspect]
     Active Substance: CENEGERMIN-BKBJ
     Route: 047
     Dates: start: 20250403
  3. EPIPEN [Concomitant]
     Active Substance: EPINEPHRINE
  4. PREGABALIN [Concomitant]
     Active Substance: PREGABALIN
  5. TAMOXIFEN CITRATE [Concomitant]
     Active Substance: TAMOXIFEN CITRATE
  6. NUCALA [Concomitant]
     Active Substance: MEPOLIZUMAB
  7. METHOTREXATE [Concomitant]
     Active Substance: METHOTREXATE
  8. ACTEMRA [Concomitant]
     Active Substance: TOCILIZUMAB
  9. ACTEMRA ACTPEN [Concomitant]
     Active Substance: TOCILIZUMAB
  10. COMBIGAN [Concomitant]
     Active Substance: BRIMONIDINE TARTRATE\TIMOLOL MALEATE
  11. FAMOTIDINE [Concomitant]
     Active Substance: FAMOTIDINE
  12. LUMIGAN [Concomitant]
     Active Substance: BIMATOPROST

REACTIONS (5)
  - Treatment noncompliance [Unknown]
  - Therapy partial responder [Unknown]
  - Photophobia [Unknown]
  - Foreign body sensation in eyes [Unknown]
  - Eye pain [Unknown]
